FAERS Safety Report 11378801 (Version 1)
Quarter: 2015Q3

REPORT INFORMATION
  Report Type: Spontaneous
  Country: US (occurrence: US)
  Receive Date: 20150811
  Receipt Date: 20150811
  Transmission Date: 20151125
  Serious: Yes (Other)
  Sender: FDA-Public Use
  Company Number: US-ELI_LILLY_AND_COMPANY-US200907003983

PATIENT
  Age: 65 Year
  Sex: Female

DRUGS (4)
  1. HUMULIN R [Suspect]
     Active Substance: INSULIN HUMAN
     Dosage: 1 ML, UNK
     Dates: start: 20090717
  2. HUMULIN R [Suspect]
     Active Substance: INSULIN HUMAN
     Dosage: 0.7 ML, UNK
     Dates: start: 20090717
  3. NOVOLOG [Concomitant]
     Active Substance: INSULIN ASPART
     Dates: start: 2008
  4. HUMULIN R [Suspect]
     Active Substance: INSULIN HUMAN
     Dosage: 1 ML, UNK
     Dates: start: 20090717

REACTIONS (3)
  - Malaise [Unknown]
  - Headache [Not Recovered/Not Resolved]
  - Hypoglycaemic coma [Recovered/Resolved]

NARRATIVE: CASE EVENT DATE: 20090717
